FAERS Safety Report 12439904 (Version 1)
Quarter: 2016Q2

REPORT INFORMATION
  Report Type: Spontaneous
  Country: US (occurrence: US)
  Receive Date: 20160606
  Receipt Date: 20160606
  Transmission Date: 20160815
  Serious: Yes (Hospitalization, Other)
  Sender: FDA-Public Use
  Company Number: US-IPCA LABORATORIES LIMITED-IPC201605-000476

PATIENT
  Sex: Female

DRUGS (2)
  1. DIPHENHYDRAMINE. [Suspect]
     Active Substance: DIPHENHYDRAMINE
  2. TRAMADOL. [Suspect]
     Active Substance: TRAMADOL

REACTIONS (8)
  - Hallucination [Unknown]
  - Acute kidney injury [Unknown]
  - Overdose [Unknown]
  - Pneumonia aspiration [Unknown]
  - Hypertension [Unknown]
  - Toxicity to various agents [Unknown]
  - Metabolic acidosis [Unknown]
  - Electrocardiogram QT prolonged [Unknown]
